FAERS Safety Report 5195292-8 (Version None)
Quarter: 2006Q4

REPORT INFORMATION
  Report Type: 
  Country: None (occurrence: None)
  Receive Date: 20061229
  Receipt Date: 20061204
  Transmission Date: 20070319
  Serious: Yes (Other)
  Sender: FDA-Public Use
  Company Number: JP-PFIZER INC-2006150860

PATIENT
  Age: 56 Year
  Sex: Female

DRUGS (4)
  1. CARDENALIN [Suspect]
     Indication: HYPERTENSION
     Dosage: DAILY DOSE:1MG
     Route: 048
  2. BLOPRESS [Suspect]
     Indication: HYPERTENSION
     Dosage: DAILY DOSE:4MG
     Route: 048
     Dates: start: 20060201, end: 20061220
  3. HERBAL PREPARATION [Concomitant]
     Route: 048
     Dates: start: 20050501
  4. LIVALO [Concomitant]
     Route: 048
     Dates: start: 20050501

REACTIONS (1)
  - VENTRICULAR EXTRASYSTOLES [None]
